FAERS Safety Report 4941411-5 (Version None)
Quarter: 2006Q1

REPORT INFORMATION
  Report Type: 
  Country: None (occurrence: None)
  Receive Date: 20060313
  Receipt Date: 20060301
  Transmission Date: 20060701
  Serious: Yes (Hospitalization)
  Sender: FDA-Public Use
  Company Number: US-MERCK-0603USA00294

PATIENT
  Sex: Female

DRUGS (3)
  1. VIOXX [Suspect]
     Indication: FOOT FRACTURE
     Route: 048
     Dates: start: 20040101
  2. VIOXX [Suspect]
     Route: 048
     Dates: start: 20040101
  3. [THERAPY UNSPECIFIED] [Concomitant]
     Indication: ANXIETY
     Route: 065

REACTIONS (1)
  - ANGINA PECTORIS [None]
